FAERS Safety Report 8514963-6 (Version None)
Quarter: 2012Q3

REPORT INFORMATION
  Report Type: 
  Country: None (occurrence: None)
  Receive Date: 20120711
  Receipt Date: 20120711
  Transmission Date: 20120928
  Serious: Yes (Other)
  Sender: FDA-Public Use
  Company Number: None

PATIENT
  Age: 54 Year
  Sex: Male
  Weight: 93.8946 kg

DRUGS (1)
  1. CEPHALEXIN [Suspect]
     Indication: TOOTH INFECTION
     Dosage: 500 MG 4X/DAY PO
     Route: 048
     Dates: start: 20120705, end: 20120710

REACTIONS (1)
  - RASH [None]
